FAERS Safety Report 23932698 (Version 1)
Quarter: 2024Q2

REPORT INFORMATION
  Report Type: Spontaneous
  Country: US (occurrence: US)
  Receive Date: 20240603
  Receipt Date: 20240603
  Transmission Date: 20240716
  Serious: Yes (Other)
  Sender: FDA-Public Use
  Company Number: US-APOTEX-2024AP006783

PATIENT
  Sex: Female

DRUGS (14)
  1. GEMCITABINE [Suspect]
     Active Substance: GEMCITABINE
     Indication: Bile duct cancer
     Dosage: 1000 MILLIGRAM/SQ. METER (ON DAY 1)
     Route: 065
  2. GEMCITABINE [Suspect]
     Active Substance: GEMCITABINE
     Indication: Biliary cancer metastatic
  3. CISPLATIN [Suspect]
     Active Substance: CISPLATIN
     Indication: Bile duct cancer
     Dosage: UNK (25/M2 ON DAY 8)
     Route: 065
  4. CISPLATIN [Suspect]
     Active Substance: CISPLATIN
     Indication: Biliary cancer metastatic
  5. OXALIPLATIN [Suspect]
     Active Substance: OXALIPLATIN
     Indication: Bile duct cancer
     Dosage: 85 MILLIGRAM/SQ. METER
     Route: 065
  6. OXALIPLATIN [Suspect]
     Active Substance: OXALIPLATIN
     Indication: Biliary cancer metastatic
  7. LEUCOVORIN [Suspect]
     Active Substance: LEUCOVORIN\LEUCOVORIN CALCIUM
     Indication: Bile duct cancer
     Dosage: 400 MILLIGRAM/SQ. METER
     Route: 065
  8. LEUCOVORIN [Suspect]
     Active Substance: LEUCOVORIN\LEUCOVORIN CALCIUM
     Indication: Biliary cancer metastatic
  9. FLUOROURACIL [Suspect]
     Active Substance: FLUOROURACIL
     Indication: Bile duct cancer
     Dosage: 1200 MICROGRAM/SQ. METER, QD (IVCI Q28 DAYS)
     Route: 065
  10. FLUOROURACIL [Suspect]
     Active Substance: FLUOROURACIL
     Indication: Biliary cancer metastatic
  11. NIVOLUMAB [Suspect]
     Active Substance: NIVOLUMAB
     Indication: Bile duct cancer
     Dosage: 3 MILLIGRAM/KILOGRAM
     Route: 065
  12. NIVOLUMAB [Suspect]
     Active Substance: NIVOLUMAB
     Indication: Biliary cancer metastatic
     Dosage: UNK UNK, Q.O.WK.
     Route: 065
  13. IPILIMUMAB [Suspect]
     Active Substance: IPILIMUMAB
     Indication: Bile duct cancer
     Dosage: 1 MILLIGRAM/KILOGRAM (EVERY 3 WEEKS FOR FOUR CYCLES)
     Route: 065
  14. IPILIMUMAB [Suspect]
     Active Substance: IPILIMUMAB
     Indication: Biliary cancer metastatic

REACTIONS (5)
  - Metastases to liver [Recovered/Resolved]
  - Malignant neoplasm progression [Recovered/Resolved]
  - Metastases to lung [Recovered/Resolved]
  - Fatigue [Recovered/Resolved]
  - Drug ineffective [Unknown]
